FAERS Safety Report 7650851-5 (Version None)
Quarter: 2011Q3

REPORT INFORMATION
  Report Type: 
  Country: None (occurrence: None)
  Receive Date: 20110727
  Receipt Date: 20110718
  Transmission Date: 20111222
  Serious: Yes (Other)
  Sender: FDA-Public Use
  Company Number: B0734834A

PATIENT
  Age: 24 Year
  Sex: Female

DRUGS (4)
  1. ZINACEF [Suspect]
     Indication: PRODUCT USED FOR UNKNOWN INDICATION
  2. ZANAMIVIR (GENERIC) ZANAMIVIR) [Suspect]
     Indication: H1N1 INFLUENZA
  3. OSELTAMIVIR PHOSPHATE [Suspect]
     Indication: H1N1 INFLUENZA
  4. ERYTHROMYCIN [Suspect]
     Indication: PRODUCT USED FOR UNKNOWN INDICATION

REACTIONS (8)
  - MATERNAL EXPOSURE DURING PREGNANCY [None]
  - H1N1 INFLUENZA [None]
  - ACUTE RESPIRATORY DISTRESS SYNDROME [None]
  - RESPIRATORY FAILURE [None]
  - MULTI-ORGAN FAILURE [None]
  - PANCYTOPENIA [None]
  - HEPATOMEGALY [None]
  - ABORTION SPONTANEOUS [None]
